FAERS Safety Report 5002628-7 (Version None)
Quarter: 2006Q2

REPORT INFORMATION
  Report Type: 
  Country: None (occurrence: None)
  Receive Date: 20060510
  Receipt Date: 20060427
  Transmission Date: 20061013
  Serious: Yes (Hospitalization)
  Sender: FDA-Public Use
  Company Number: JP-2006-007637

PATIENT
  Age: 53 Year
  Sex: Female
  Weight: 56.9 kg

DRUGS (5)
  1. BETAFERON (INTERFERON BETA - 1B) INJECTION, 250UG [Suspect]
     Indication: MULTIPLE SCLEROSIS
     Dosage: 8 MIU, EVERY 2D, SUBCUTANEOUS
     Route: 058
     Dates: start: 20010401, end: 20060101
  2. JUVELA NICOTINATE (TOCOPHERYL NICOTINATE) CAPSULE [Concomitant]
  3. METHYCOBAL (MECOBALAMIN) TABLET [Concomitant]
  4. TIZANIDINE HCL [Concomitant]
  5. LIORESAL ^NOVARTIS^ TABLET [Concomitant]

REACTIONS (1)
  - SARCOIDOSIS [None]
